FAERS Safety Report 7704033-9 (Version None)
Quarter: 2011Q3

REPORT INFORMATION
  Report Type: 
  Country: None (occurrence: None)
  Receive Date: 20110729
  Receipt Date: 20110315
  Transmission Date: 20111222
  Serious: Yes (Hospitalization, Other)
  Sender: FDA-Public Use
  Company Number: CERZ-1001884

PATIENT
  Age: 18 Month
  Sex: Female
  Weight: 9.4 kg

DRUGS (1)
  1. CEREZYME [Suspect]
     Indication: GAUCHER'S DISEASE
     Dosage: 128 U/KG, Q2W, INTRAVENOUS
     Route: 042
     Dates: start: 20101201

REACTIONS (1)
  - PNEUMONIA [None]
